FAERS Safety Report 8887790 (Version 1)
Quarter: 2012Q4

REPORT INFORMATION
  Report Type: Spontaneous
  Country: US (occurrence: None)
  Receive Date: 20121101
  Receipt Date: 20121101
  Transmission Date: 20130627
  Serious: Yes (Life-Threatening, Hospitalization)
  Sender: FDA-Public Use
  Company Number: None

PATIENT
  Sex: Female
  Weight: 75.3 kg

DRUGS (10)
  1. GEMCITABINE [Suspect]
     Indication: BLADDER CANCER
     Dosage: IV every 2 weeks
     Route: 042
     Dates: start: 20121005
  2. GEMCITABINE [Suspect]
     Dosage: IV every 2 weeks
     Route: 042
     Dates: start: 20121005
  3. GEMCITABINE [Suspect]
     Indication: BLADDER CANCER
     Dosage: IV every 2 weeks
     Route: 042
     Dates: start: 20121019
  4. GEMCITABINE [Suspect]
     Dosage: IV every 2 weeks
     Route: 042
     Dates: start: 20121019
  5. NEULASTA [Suspect]
     Indication: BLADDER CANCER
     Dosage: 24-48 hr post chemo
     Route: 058
     Dates: start: 20121006
  6. NEULASTA [Suspect]
     Dosage: 24-48 hr post chemo
     Route: 058
     Dates: start: 20121006
  7. NEULASTA [Suspect]
     Indication: BLADDER CANCER
     Dosage: 24-48 hr post chemo
     Route: 058
     Dates: start: 20121020
  8. NEULASTA [Suspect]
     Dosage: 24-48 hr post chemo
     Route: 058
     Dates: start: 20121020
  9. CISPLATIN [Suspect]
     Indication: BLADDER CANCER
     Dosage: IV every 2 weeks
     Route: 042
     Dates: start: 20121005
  10. CISPLATIN [Suspect]
     Indication: BLADDER CANCER
     Dosage: IV every 2 weeks
     Route: 042
     Dates: start: 20121019

REACTIONS (2)
  - Pulmonary embolism [None]
  - Coronary artery embolism [None]
